FAERS Safety Report 7781926-8 (Version None)
Quarter: 2011Q3

REPORT INFORMATION
  Report Type: 
  Country: None (occurrence: None)
  Receive Date: 20110927
  Receipt Date: 20110404
  Transmission Date: 20111222
  Serious: No
  Sender: FDA-Public Use
  Company Number: US-BAYER-2011-029231

PATIENT
  Age: 39 Year
  Sex: Female
  Weight: 86.168 kg

DRUGS (2)
  1. ULTRAVIST 150 [Suspect]
     Indication: ANGIOGRAM PULMONARY
     Dosage: 100 ML, ONCE
     Route: 042
     Dates: start: 20110404, end: 20110404
  2. ULTRAVIST 150 [Suspect]
     Indication: PULMONARY EMBOLISM

REACTIONS (2)
  - PRURITUS [None]
  - URTICARIA [None]
